FAERS Safety Report 4304030-X (Version None)
Quarter: 2004Q1

REPORT INFORMATION
  Report Type: 
  Country: None (occurrence: None)
  Receive Date: 20040223
  Receipt Date: 20031201
  Transmission Date: 20041129
  Serious: No
  Sender: FDA-Public Use
  Company Number: PHEH2003US09900

PATIENT
  Age: 76 Year
  Sex: Male
  Weight: 68 kg

DRUGS (6)
  1. ZELNORM [Suspect]
     Indication: IRRITABLE BOWEL SYNDROME
     Dosage: 6 MG, BID, ORAL
     Route: 048
     Dates: start: 20030502, end: 20031110
  2. MIRALAX [Concomitant]
  3. CARDURA [Concomitant]
  4. LOTREL [Concomitant]
  5. PREVACID [Concomitant]
  6. MOBIC [Concomitant]

REACTIONS (2)
  - BALANCE DISORDER [None]
  - FEELING HOT [None]
